FAERS Safety Report 8452497-8 (Version None)
Quarter: 2012Q2

REPORT INFORMATION
  Report Type: 
  Country: None (occurrence: None)
  Receive Date: 20120620
  Receipt Date: 20120412
  Transmission Date: 20120825
  Serious: No
  Sender: FDA-Public Use
  Company Number: US-VERTEX PHARMACEUTICALS INC.-AE-2012-005317

PATIENT
  Sex: Male

DRUGS (11)
  1. METOPROLOL TARTRATE [Concomitant]
     Indication: HYPERTENSION
     Route: 048
  2. OMEPRAZOLE [Concomitant]
     Indication: GASTROOESOPHAGEAL REFLUX DISEASE
     Route: 048
  3. RIBAVIRIN [Concomitant]
     Indication: HEPATITIS C
     Route: 048
     Dates: start: 20120412
  4. CHLORDIAZEPOXIDE [Concomitant]
     Indication: ANXIETY
  5. ASPIRIN [Concomitant]
     Indication: ANTICOAGULATION DRUG LEVEL
     Route: 048
  6. VENTOLIN [Concomitant]
     Indication: BRONCHOSPASM
  7. LISINOPRIL [Concomitant]
     Indication: HYPERTENSION
     Route: 048
  8. CHLORDIAZEPOXIDE [Concomitant]
     Indication: AGITATION
  9. PEGASYS [Concomitant]
     Indication: HEPATITIS C
     Route: 058
     Dates: start: 20120412
  10. LEVAQUIN [Concomitant]
     Indication: BRONCHITIS
     Route: 048
  11. INCIVEK [Suspect]
     Indication: HEPATITIS C
     Route: 048
     Dates: start: 20120412

REACTIONS (4)
  - INFLUENZA LIKE ILLNESS [None]
  - HEADACHE [None]
  - PAIN IN EXTREMITY [None]
  - PYREXIA [None]
